FAERS Safety Report 4723440-X (Version None)
Quarter: 2005Q3

REPORT INFORMATION
  Report Type: 
  Country: None (occurrence: None)
  Receive Date: 20050725
  Receipt Date: 20040223
  Transmission Date: 20060218
  Serious: Yes (Other)
  Sender: FDA-Public Use
  Company Number: 200410589JP

PATIENT
  Age: 61 Year
  Sex: Female

DRUGS (7)
  1. KETEK [Suspect]
     Indication: BRONCHITIS
     Route: 048
     Dates: start: 20040116, end: 20040120
  2. PA [Concomitant]
     Indication: BRONCHITIS
     Dosage: DOSE: 6T
     Route: 048
     Dates: start: 20040116, end: 20040202
  3. ASTOMIN [Concomitant]
     Indication: BRONCHITIS
     Route: 048
     Dates: start: 20040116, end: 20040224
  4. MUCOSOLVAN [Concomitant]
     Indication: BRONCHITIS
     Route: 048
     Dates: start: 20040116
  5. IDOMETHINE [Concomitant]
     Indication: BRONCHITIS
     Route: 054
     Dates: start: 20040116
  6. KEFRAL [Concomitant]
     Indication: BRONCHITIS
     Route: 048
     Dates: start: 20040120, end: 20040129
  7. SELBEX [Concomitant]
     Indication: GASTRITIS
     Route: 048
     Dates: start: 20040128

REACTIONS (2)
  - DRUG INEFFECTIVE [None]
  - INTERSTITIAL LUNG DISEASE [None]
